FAERS Safety Report 7999329-X (Version None)
Quarter: 2011Q4

REPORT INFORMATION
  Report Type: 
  Country: None (occurrence: None)
  Receive Date: 20111221
  Receipt Date: 20111209
  Transmission Date: 20120403
  Serious: Yes (Hospitalization)
  Sender: FDA-Public Use
  Company Number: KR-PFIZER INC-2011300401

PATIENT
  Age: 72 Year
  Sex: Male
  Weight: 61.8 kg

DRUGS (12)
  1. SILODOSIN [Concomitant]
     Indication: DYSURIA
     Dosage: UNK
     Dates: start: 20100721
  2. TIZANIDINE [Concomitant]
     Indication: BACK PAIN
     Dosage: UNK
     Dates: start: 20111207, end: 20111208
  3. METFORMIN HCL [Suspect]
     Indication: DIABETES MELLITUS
     Dosage: 250 MG, 2X/DAY
     Route: 048
     Dates: start: 20101026, end: 20111208
  4. ACECLOFENAC [Concomitant]
     Indication: BACK PAIN
     Dosage: UNK
     Dates: start: 20111207, end: 20111208
  5. VOGLIBOSE [Concomitant]
     Indication: DIABETES MELLITUS
     Dosage: UNK
     Dates: start: 20070101
  6. LIMAPROST [Concomitant]
     Indication: BACK PAIN
     Dosage: UNK
     Dates: start: 20111207, end: 20111208
  7. CRIZOTINIB [Suspect]
     Indication: NON-SMALL CELL LUNG CANCER
     Dosage: 200 MG, 2X/DAY
     Route: 048
     Dates: start: 20100504, end: 20111207
  8. DUTASTERIDE [Concomitant]
     Indication: DYSURIA
     Dosage: UNK
     Dates: start: 20110307
  9. ALMAGATE [Concomitant]
     Indication: BACK PAIN
     Dosage: UNK
     Dates: start: 20111207, end: 20111208
  10. CARVEDILOL [Suspect]
     Indication: HYPERTENSION
     Dosage: 12.5 MG, 1X/DAY
     Route: 048
     Dates: start: 20070101, end: 20111208
  11. GLIMEPIRIDE [Suspect]
     Indication: DIABETES MELLITUS
     Dosage: 4 MG, 2X/DAY
     Route: 048
     Dates: start: 20070101, end: 20111208
  12. ATORVASTATIN [Concomitant]
     Indication: HYPERLIPIDAEMIA
     Dosage: UNK
     Dates: start: 20070101

REACTIONS (1)
  - HYPERKALAEMIA [None]
